FAERS Safety Report 10843769 (Version 1)
Quarter: 2015Q1

REPORT INFORMATION
  Report Type: Spontaneous
  Country: DE (occurrence: DE)
  Receive Date: 20150220
  Receipt Date: 20150220
  Transmission Date: 20150721
  Serious: Yes (Other)
  Sender: FDA-Public Use
  Company Number: DE-JNJFOC-20150207853

PATIENT
  Age: 55 Year
  Sex: Male
  Weight: 100 kg

DRUGS (2)
  1. XARELTO [Suspect]
     Active Substance: RIVAROXABAN
     Indication: THROMBOSIS
     Route: 048
     Dates: start: 20150122
  2. XARELTO [Suspect]
     Active Substance: RIVAROXABAN
     Indication: EMBOLISM VENOUS
     Route: 048
     Dates: start: 20150122

REACTIONS (10)
  - Sensory disturbance [Unknown]
  - Throat tightness [Unknown]
  - Limb discomfort [Unknown]
  - Balance disorder [Unknown]
  - Hypertensive crisis [Unknown]
  - Dizziness [Unknown]
  - Muscular weakness [Unknown]
  - Respiratory depression [Unknown]
  - Respiratory distress [Unknown]
  - Coordination abnormal [Unknown]

NARRATIVE: CASE EVENT DATE: 20150123
